FAERS Safety Report 14910601 (Version 1)
Quarter: 2018Q2

REPORT INFORMATION
  Report Type: Spontaneous
  Country: US (occurrence: US)
  Receive Date: 20180517
  Receipt Date: 20180517
  Transmission Date: 20180711
  Serious: Yes (Hospitalization, Other)
  Sender: FDA-Public Use
  Company Number: US-BEH-2018090621

PATIENT
  Sex: Female
  Weight: 120.64 kg

DRUGS (24)
  1. NEXIUM [Concomitant]
     Active Substance: ESOMEPRAZOLE MAGNESIUM
  2. BUSPIRONE [Concomitant]
     Active Substance: BUSPIRONE HYDROCHLORIDE
  3. TROSPIUM [Concomitant]
     Active Substance: TROSPIUM
  4. EPIPEN [Concomitant]
     Active Substance: EPINEPHRINE
  5. KETOROLAC [Concomitant]
     Active Substance: KETOROLAC\KETOROLAC TROMETHAMINE
  6. PAROXETINE. [Concomitant]
     Active Substance: PAROXETINE
  7. LIFITEGRAST [Concomitant]
     Active Substance: LIFITEGRAST
  8. LOVAZA [Concomitant]
     Active Substance: OMEGA-3-ACID ETHYL ESTERS
  9. FOLIC ACID. [Concomitant]
     Active Substance: FOLIC ACID
  10. FROVATRIPTAN. [Concomitant]
     Active Substance: FROVATRIPTAN
  11. FLUTICASONE FUROATE [Concomitant]
     Active Substance: FLUTICASONE FUROATE
  12. HIZENTRA [Suspect]
     Active Substance: HUMAN IMMUNOGLOBULIN G
     Indication: MYASTHENIA GRAVIS
     Dosage: 7 G, QW
     Route: 058
     Dates: start: 20180111
  13. SYMBICORT [Concomitant]
     Active Substance: BUDESONIDE\FORMOTEROL FUMARATE DIHYDRATE
  14. SAVELLA [Concomitant]
     Active Substance: MILNACIPRAN HYDROCHLORIDE
  15. METHOTREXATE. [Concomitant]
     Active Substance: METHOTREXATE
  16. ACETAMINOPHEN. [Concomitant]
     Active Substance: ACETAMINOPHEN
  17. EPINEPHRINE. [Concomitant]
     Active Substance: EPINEPHRINE
  18. XANAX [Concomitant]
     Active Substance: ALPRAZOLAM
  19. BACLOFEN. [Concomitant]
     Active Substance: BACLOFEN
  20. PROAIR HFA [Concomitant]
     Active Substance: ALBUTEROL SULFATE
  21. LOSARTAN. [Concomitant]
     Active Substance: LOSARTAN
  22. CARISOPRODOL. [Concomitant]
     Active Substance: CARISOPRODOL
  23. EVOXAC [Concomitant]
     Active Substance: CEVIMELINE HYDROCHLORIDE
  24. ZOMIG [Concomitant]
     Active Substance: ZOLMITRIPTAN

REACTIONS (4)
  - Sjogren^s syndrome [Unknown]
  - Systemic lupus erythematosus [Unknown]
  - Hypertensive emergency [Recovered/Resolved]
  - Myocardial infarction [Unknown]
